FAERS Safety Report 5328878-8 (Version None)
Quarter: 2007Q2

REPORT INFORMATION
  Report Type: 
  Country: None (occurrence: None)
  Receive Date: 20070518
  Receipt Date: 20070508
  Transmission Date: 20071010
  Serious: Yes (Other)
  Sender: FDA-Public Use
  Company Number: UG-GILEAD-2007-0012054

PATIENT
  Age: 28 Year
  Sex: Female

DRUGS (4)
  1. VIREAD [Suspect]
     Indication: HIV INFECTION
     Route: 048
     Dates: start: 20050610
  2. VIREAD [Suspect]
     Route: 048
     Dates: start: 20040319, end: 20050318
  3. COMBIVIR [Suspect]
     Indication: HIV INFECTION
     Route: 048
     Dates: start: 20050610
  4. COMBIVIR [Suspect]
     Route: 048
     Dates: start: 20040319, end: 20050318

REACTIONS (1)
  - ABORTION SPONTANEOUS [None]
